FAERS Safety Report 8539585-2 (Version None)
Quarter: 2012Q3

REPORT INFORMATION
  Report Type: 
  Country: None (occurrence: None)
  Receive Date: 20120726
  Receipt Date: 20120712
  Transmission Date: 20120928
  Serious: Yes (Other)
  Sender: FDA-Public Use
  Company Number: SE-ELI_LILLY_AND_COMPANY-SE201207003939

PATIENT
  Sex: Female

DRUGS (1)
  1. CYMBALTA [Suspect]
     Indication: PSYCHIATRIC SYMPTOM
     Dosage: UNK
     Dates: end: 20101208

REACTIONS (3)
  - OFF LABEL USE [None]
  - JOINT DISLOCATION [None]
  - CONVULSION [None]
